FAERS Safety Report 6372109-7 (Version None)
Quarter: 2009Q3

REPORT INFORMATION
  Report Type: 
  Country: None (occurrence: None)
  Receive Date: 20090917
  Receipt Date: 20090914
  Transmission Date: 20100115
  Serious: Yes (Hospitalization)
  Sender: FDA-Public Use
  Company Number: GXKR2009DE10198

PATIENT
  Sex: Female

DRUGS (1)
  1. DICLOFENAC               (DICLOFENAC) [Suspect]
     Dosage: 50 MG, ORAL
     Route: 048

REACTIONS (3)
  - HEPATIC CANCER METASTATIC [None]
  - JAUNDICE [None]
  - LIVER DISORDER [None]
